FAERS Safety Report 19832706 (Version 1)
Quarter: 2021Q3

REPORT INFORMATION
  Report Type: Report from Study
  Country: US (occurrence: US)
  Receive Date: 20210915
  Receipt Date: 20210915
  Transmission Date: 20211014
  Serious: Yes (Hospitalization)
  Sender: FDA-Public Use
  Company Number: US-GLAXOSMITHKLINE-US2021GSK193361

PATIENT
  Age: 63 Year
  Sex: Female
  Weight: 81.9 kg

DRUGS (10)
  1. PACLITAXEL. [Suspect]
     Active Substance: PACLITAXEL
     Indication: BREAST CANCER
     Dosage: 205 MG/M2, Z?D1, 2,3 WEEKLY
     Route: 048
     Dates: start: 20210824
  2. ENCEQUIDAR(HM30181A) [Suspect]
     Active Substance: ENCEQUIDAR MESYLATE MONOHYDRATE
     Dosage: 15 MG, Z?D1, 2,3 WEEKLY
     Route: 048
     Dates: start: 20210824
  3. ONDASETRON [Concomitant]
     Active Substance: ONDANSETRON
     Indication: NAUSEA
     Dosage: 4 MG, PRN
     Route: 048
     Dates: start: 20210823
  4. TIZANIDINE. [Concomitant]
     Active Substance: TIZANIDINE
     Indication: NECK PAIN
  5. DOSTARLIMAB [Suspect]
     Active Substance: DOSTARLIMAB
     Indication: BREAST CANCER
     Dosage: 500 MG, Z? D1, Q3W)
     Route: 042
     Dates: start: 20210824, end: 20210824
  6. ASPIRIN. [Concomitant]
     Active Substance: ASPIRIN
     Dosage: 81 MG
     Route: 048
  7. CARBOPLATIN (NON?GSK COMPARATOR) [Suspect]
     Active Substance: CARBOPLATIN
     Indication: BREAST CANCER
     Dosage: 1.5 AUC, WE
     Route: 042
     Dates: start: 20210824, end: 20210824
  8. ATORVASTATIN [Concomitant]
     Active Substance: ATORVASTATIN
     Indication: DYSLIPIDAEMIA
     Dosage: 20 MG
     Route: 048
     Dates: start: 20210713
  9. FAMOTIDINE. [Concomitant]
     Active Substance: FAMOTIDINE
     Dosage: 40 MG
     Route: 048
     Dates: start: 20210726
  10. TIZANIDINE. [Concomitant]
     Active Substance: TIZANIDINE
     Indication: BACK PAIN
     Dosage: 4 MG, PRN
     Route: 048
     Dates: start: 20210726

REACTIONS (1)
  - Cholelithiasis [Not Recovered/Not Resolved]

NARRATIVE: CASE EVENT DATE: 20210903
